FAERS Safety Report 4822973-5 (Version None)
Quarter: 2005Q4

REPORT INFORMATION
  Report Type: 
  Country: None (occurrence: None)
  Receive Date: 20051108
  Receipt Date: 20051031
  Transmission Date: 20060501
  Serious: Yes (Hospitalization)
  Sender: FDA-Public Use
  Company Number: US-JNJFOC-20051100313

PATIENT
  Age: 1 Month
  Sex: Female
  Weight: 2.2 kg

DRUGS (2)
  1. TYLENOL (CAPLET) [Suspect]
     Route: 048
  2. TYLENOL (CAPLET) [Suspect]
     Indication: DRUG USE FOR UNKNOWN INDICATION
     Dosage: 5.40000009536743ML; }8HR {=24 HR
     Route: 048

REACTIONS (4)
  - ABDOMINAL PAIN [None]
  - ACCIDENTAL OVERDOSE [None]
  - DRUG INEFFECTIVE [None]
  - MEDICATION ERROR [None]
